FAERS Safety Report 11922503 (Version 1)
Quarter: 2016Q1

REPORT INFORMATION
  Report Type: Report from Study
  Country: US (occurrence: US)
  Receive Date: 20160115
  Receipt Date: 20160115
  Transmission Date: 20160526
  Serious: Yes (Hospitalization, Other)
  Sender: FDA-Public Use
  Company Number: US-KADMON PHARMACEUTICALS, LLC-KAD201601-000163

PATIENT
  Age: 67 Year
  Sex: Male

DRUGS (17)
  1. VIEKIRA PAK [Suspect]
     Active Substance: DASABUVIR\OMBITASVIR\PARITAPREVIR\RITONAVIR
     Indication: HEPATITIS C
     Dosage: TABLET, 75-50-25-MG PACK; 1 DOSE PACK DAILY AS DIRECTED
     Route: 048
     Dates: start: 20151130
  2. ALPHA LIPOIC ACID [Concomitant]
     Active Substance: .ALPHA.-LIPOIC ACID
     Route: 048
     Dates: start: 20151110
  3. AMITRIPTYLINE HCL [Concomitant]
     Active Substance: AMITRIPTYLINE
     Dates: start: 20151110
  4. DEXILANT [Concomitant]
     Active Substance: DEXLANSOPRAZOLE
     Route: 048
     Dates: start: 20151212
  5. TESTOSTERONE CYP [Concomitant]
     Active Substance: TESTOSTERONE CYPIONATE
     Dates: start: 20151110, end: 20151212
  6. RIBAVIRIN. [Suspect]
     Active Substance: RIBAVIRIN
     Indication: HEPATITIS C
     Dosage: TABLET
     Route: 048
  7. OMEPRAZOLE. [Concomitant]
     Active Substance: OMEPRAZOLE
     Dates: start: 20151110, end: 20151212
  8. CIALIS [Concomitant]
     Active Substance: TADALAFIL
     Dates: start: 20151110, end: 20151212
  9. HYDROXYZINE POW HCL [Concomitant]
     Dates: start: 20151212, end: 20151224
  10. KP VITAMIN D [Concomitant]
     Dates: start: 20151110
  11. METFORMIN [Concomitant]
     Active Substance: METFORMIN HYDROCHLORIDE
     Dates: start: 20151110
  12. FLUOXETINE SOL [Concomitant]
     Dates: start: 20151119
  13. GLIMEPIRIDE. [Concomitant]
     Active Substance: GLIMEPIRIDE
     Route: 048
     Dates: start: 20151224
  14. FLOMAX [Concomitant]
     Active Substance: TAMSULOSIN HYDROCHLORIDE
     Dates: start: 20151110, end: 20151212
  15. TRAZODONE HYDROCHLORIDE. [Concomitant]
     Active Substance: TRAZODONE HYDROCHLORIDE
     Dates: start: 20151212
  16. XANAX [Concomitant]
     Active Substance: ALPRAZOLAM
     Route: 048
     Dates: start: 20151110, end: 20151224
  17. RIBASPHERE [Concomitant]
     Active Substance: RIBAVIRIN
     Dates: start: 20151130

REACTIONS (8)
  - Blood electrolytes decreased [Recovered/Resolved]
  - Fatigue [Unknown]
  - Dizziness [Recovered/Resolved]
  - Blood electrolytes abnormal [Unknown]
  - Anaemia [Recovered/Resolved]
  - Pruritus [Unknown]
  - Acarodermatitis [Unknown]
  - Fall [Recovered/Resolved]

NARRATIVE: CASE EVENT DATE: 201512
